FAERS Safety Report 8480520 (Version 2)
Quarter: 2012Q4

REPORT INFORMATION
  Report Type: 
  Country: BR (occurrence: BR)
  Receive Date: 20120328
  Receipt Date: 20121012
  Transmission Date: 20130627
  Serious: Yes (Other)
  Sender: FDA-Public Use
  Company Number: BR-ASTRAZENECA-2012SE19164

PATIENT
  Age: 59 Year
  Sex: Female
  Weight: 71 kg

DRUGS (8)
  1. NEXIUM [Suspect]
     Indication: GASTRITIS
     Route: 048
  2. NEXIUM [Suspect]
     Indication: GASTRITIS PROPHYLAXIS
     Route: 048
  3. CRESTOR [Suspect]
     Indication: BLOOD CHOLESTEROL INCREASED
     Route: 048
     Dates: start: 2006
  4. BRILINTA [Suspect]
     Indication: ANTICOAGULANT THERAPY
     Route: 048
     Dates: start: 20120311
  5. SELOZOK [Suspect]
     Route: 048
  6. MICARDIS [Concomitant]
     Indication: HYPERTENSION
     Route: 048
  7. DILURIC [Concomitant]
     Route: 048
  8. MONOCORDIL [Concomitant]
     Indication: VARICOSE VEIN

REACTIONS (7)
  - Myocardial ischaemia [Recovered/Resolved]
  - Gastritis [Recovered/Resolved]
  - Arteriosclerosis [Not Recovered/Not Resolved]
  - Myalgia [Not Recovered/Not Resolved]
  - Dry mouth [Not Recovered/Not Resolved]
  - Abdominal discomfort [Not Recovered/Not Resolved]
  - Off label use [Not Recovered/Not Resolved]
